FAERS Safety Report 25057047 (Version 1)
Quarter: 2025Q1

REPORT INFORMATION
  Report Type: Spontaneous
  Country: US (occurrence: US)
  Receive Date: 20250310
  Receipt Date: 20250310
  Transmission Date: 20250408
  Serious: Yes (Hospitalization)
  Sender: GENMAB
  Company Number: US-GENMAB-2025-00595

PATIENT
  Age: 83 Year
  Sex: Female
  Weight: 54.43 kg

DRUGS (2)
  1. EPKINLY [Suspect]
     Active Substance: EPCORITAMAB-BYSP
     Indication: Chronic lymphocytic leukaemia
     Dosage: UNK UNK, WEEKLY (3 SMALLER DOSES (0.8, 1 SOMETHING AND SOMETHING 3 FOR 3 WEEKS IN A ROW))
     Route: 065
     Dates: start: 20241218
  2. EPKINLY [Suspect]
     Active Substance: EPCORITAMAB-BYSP
     Route: 065
     Dates: start: 20250118, end: 20250118

REACTIONS (4)
  - Delusion [Recovering/Resolving]
  - Cytokine release syndrome [Recovered/Resolved]
  - Amnesia [Not Recovered/Not Resolved]
  - Drug effective for unapproved indication [Recovered/Resolved]

NARRATIVE: CASE EVENT DATE: 20241218
